FAERS Safety Report 6041980-0 (Version None)
Quarter: 2009Q1

REPORT INFORMATION
  Report Type: 
  Country: None (occurrence: None)
  Receive Date: 20090116
  Receipt Date: 20090107
  Transmission Date: 20090719
  Serious: Yes (Hospitalization)
  Sender: FDA-Public Use
  Company Number: FR-PFIZER INC-2005134540

PATIENT

DRUGS (10)
  1. SUNITINIB MALATE [Suspect]
     Indication: METASTATIC RENAL CELL CARCINOMA
     Dosage: EVERY DAY
     Route: 048
     Dates: start: 20050711, end: 20050918
  2. SECTRAL [Concomitant]
     Route: 048
     Dates: start: 20050924
  3. AUGMENTIN '125' [Concomitant]
     Route: 048
     Dates: start: 20050920
  4. CIPROFLOXACIN HYDROCHLORIDE [Concomitant]
     Route: 048
     Dates: start: 20050923
  5. INSULIN [Concomitant]
     Route: 058
     Dates: start: 19950101
  6. DIAMICRON [Concomitant]
     Route: 048
     Dates: start: 19950101
  7. STAGID [Concomitant]
     Route: 048
     Dates: start: 19950101
  8. RABEPRAZOLE SODIUM [Concomitant]
     Route: 048
     Dates: start: 20050606
  9. DIGOXIN [Concomitant]
     Route: 042
     Dates: start: 20050923, end: 20050924
  10. INNOHEP [Concomitant]
     Route: 058
     Dates: start: 20050924

REACTIONS (1)
  - ATRIAL FIBRILLATION [None]
